FAERS Safety Report 13649027 (Version 1)
Quarter: 2017Q2

REPORT INFORMATION
  Report Type: Report from Study
  Country: CH (occurrence: CH)
  Receive Date: 20170613
  Receipt Date: 20170613
  Transmission Date: 20170830
  Serious: Yes (Other)
  Sender: FDA-Public Use
  Company Number: CH-MYLANLABS-2017M1035622

PATIENT

DRUGS (2)
  1. PENTOSTATIN. [Suspect]
     Active Substance: PENTOSTATIN
     Indication: HAIRY CELL LEUKAEMIA
     Route: 065
  2. INTERFERON ALPHA 1-A [Suspect]
     Active Substance: INTERFERON ALFA-1A
     Indication: HAIRY CELL LEUKAEMIA
     Route: 065

REACTIONS (1)
  - Prostate cancer [Unknown]
